FAERS Safety Report 8180234-3 (Version None)
Quarter: 2012Q1

REPORT INFORMATION
  Report Type: 
  Country: None (occurrence: None)
  Receive Date: 20120215
  Receipt Date: 20120206
  Transmission Date: 20120608
  Serious: Yes (Life-Threatening)
  Sender: FDA-Public Use
  Company Number: 2012031009

PATIENT
  Age: 71 Year
  Sex: Male

DRUGS (4)
  1. BETA BLOCKING AGENTS (BETA BLOCKING AGENTS) [Concomitant]
  2. STATIN (TIABENDAZOLE) [Concomitant]
  3. CORTICOSTEROIDS (CORTICOSTEROIDS) [Concomitant]
  4. PRIVIGEN [Suspect]
     Indication: HAEMOLYTIC ANAEMIA
     Dosage: 20 G QD, 20G IN 2HOURS
     Route: 042

REACTIONS (11)
  - MALAISE [None]
  - BLOOD PH DECREASED [None]
  - TACHYCARDIA [None]
  - MULTI-ORGAN FAILURE [None]
  - OFF LABEL USE [None]
  - ABDOMINAL PAIN [None]
  - PLATELET COUNT DECREASED [None]
  - ACUTE HEPATIC FAILURE [None]
  - DISSEMINATED INTRAVASCULAR COAGULATION [None]
  - BLOOD LACTIC ACID INCREASED [None]
  - CARDIAC FAILURE [None]
